FAERS Safety Report 7221608-4 (Version None)
Quarter: 2011Q1

REPORT INFORMATION
  Report Type: 
  Country: None (occurrence: None)
  Receive Date: 20110112
  Receipt Date: 20110105
  Transmission Date: 20110831
  Serious: Yes (Hospitalization, Other)
  Sender: FDA-Public Use
  Company Number: US-TEVA-262286USA

PATIENT
  Sex: Female

DRUGS (1)
  1. SIMVASTATIN [Suspect]
     Indication: BLOOD CHOLESTEROL INCREASED
     Dates: start: 20101208, end: 20110103

REACTIONS (3)
  - BLOOD PRESSURE INCREASED [None]
  - VISUAL FIELD DEFECT [None]
  - HYPOAESTHESIA [None]
